FAERS Safety Report 14839611 (Version 1)
Quarter: 2018Q2

REPORT INFORMATION
  Report Type: Spontaneous
  Country: ES (occurrence: ES)
  Receive Date: 20180502
  Receipt Date: 20180502
  Transmission Date: 20180711
  Serious: Yes (Other)
  Sender: FDA-Public Use
  Company Number: PHHY2018ES074750

PATIENT
  Age: 70 Year
  Sex: Female

DRUGS (2)
  1. ZOLEDRONIC ACID [Suspect]
     Active Substance: ZOLEDRONIC ACID
     Indication: BREAST CANCER METASTATIC
     Dosage: 4 MG, QMO
     Route: 065
     Dates: start: 201301
  2. PACLITAXEL. [Suspect]
     Active Substance: PACLITAXEL
     Indication: BREAST CANCER METASTATIC
     Dosage: 260 MG/M2, CYCLIC (DAYS 1 AND 8, EVERY 21 DAYS)
     Route: 065
     Dates: start: 201301

REACTIONS (5)
  - Metastases to bone [Unknown]
  - Haematemesis [Unknown]
  - Spinal pain [Recovering/Resolving]
  - Thrombocytopenia [Unknown]
  - Malignant neoplasm progression [Unknown]
